FAERS Safety Report 16688585 (Version 1)
Quarter: 2019Q4

REPORT INFORMATION
  Report Type: Spontaneous
  Country: US (occurrence: US)
  Receive Date: 20190809
  Receipt Date: 20190809
  Transmission Date: 20200122
  Serious: Yes (Disabling)
  Sender: FDA-Public Use
  Company Number: None

PATIENT
  Age: 28 Year
  Sex: Female
  Weight: 54 kg

DRUGS (4)
  1. COAL TAR SHAMPOO [Concomitant]
     Active Substance: COAL TAR
  2. CLOBETESOL [Concomitant]
     Active Substance: CLOBETASOL
  3. NIZORAL [Suspect]
     Active Substance: KETOCONAZOLE
     Indication: SEBORRHOEIC DERMATITIS
  4. TACLONEX [Concomitant]
     Active Substance: BETAMETHASONE DIPROPIONATE\CALCIPOTRIENE\CALCIPOTRIENE HYDRATE

REACTIONS (6)
  - Application site reaction [None]
  - Application site pain [None]
  - Application site pustules [None]
  - Drug ineffective [None]
  - Hair texture abnormal [None]
  - Application site erythema [None]

NARRATIVE: CASE EVENT DATE: 20190607
